FAERS Safety Report 18608258 (Version 1)
Quarter: 2020Q4

REPORT INFORMATION
  Report Type: Report from Study
  Country: CA (occurrence: CA)
  Receive Date: 20201212
  Receipt Date: 20201212
  Transmission Date: 20210114
  Serious: Yes (Other)
  Sender: FDA-Public Use
  Company Number: PHHY2017CA132200

PATIENT
  Age: 36 Year
  Sex: Male

DRUGS (1)
  1. GILENYA [Suspect]
     Active Substance: FINGOLIMOD HYDROCHLORIDE
     Indication: RELAPSING-REMITTING MULTIPLE SCLEROSIS
     Dosage: 0.5 MG, QD
     Route: 048
     Dates: start: 20170905, end: 20180921

REACTIONS (4)
  - Spinal cord disorder [Unknown]
  - Sinus arrhythmia [Unknown]
  - Central nervous system lesion [Unknown]
  - White matter lesion [Unknown]

NARRATIVE: CASE EVENT DATE: 20170905
